FAERS Safety Report 9555241 (Version 1)
Quarter: 2013Q3

REPORT INFORMATION
  Report Type: Spontaneous
  Country: US (occurrence: None)
  Receive Date: 20130917
  Receipt Date: 20130917
  Transmission Date: 20140515
  Serious: Yes (Hospitalization)
  Sender: FDA-Public Use
  Company Number: 086705

PATIENT
  Age: 57 Year
  Sex: Female

DRUGS (2)
  1. ROTIGOTINE [Suspect]
     Indication: PARKINSON^S DISEASE
     Dosage: 10 MG, 6 MG + 2X2 MG PATCH = 10MG/DAY TRANSDERMAL?
     Route: 062
  2. CARBIDOPA/LEVODOPA [Concomitant]

REACTIONS (4)
  - Hypersensitivity [None]
  - Myalgia [None]
  - Application site pruritus [None]
  - Drug ineffective [None]
